FAERS Safety Report 4332474-9 (Version None)
Quarter: 2004Q2

REPORT INFORMATION
  Report Type: 
  Country: None (occurrence: None)
  Receive Date: 20040401
  Receipt Date: 20040322
  Transmission Date: 20050107
  Serious: Yes (Life-Threatening, Hospitalization, Other)
  Sender: FDA-Public Use
  Company Number: HQWYE018622MAR04

PATIENT
  Age: 44 Year
  Sex: Male

DRUGS (5)
  1. CORDARONE [Suspect]
     Indication: ARRHYTHMIA
     Dosage: SEE IMAGE
     Route: 048
     Dates: start: 20040105, end: 20040101
  2. CORDARONE [Suspect]
     Indication: ARRHYTHMIA
     Dosage: SEE IMAGE
     Route: 048
     Dates: start: 20040101
  3. FLECAINIDE ACETATE [Concomitant]
  4. PHENPROCOUMON (PHENPROCOUMON) [Concomitant]
  5. SOTALOL HCL [Concomitant]

REACTIONS (2)
  - BRADYCARDIA [None]
  - MEDICATION ERROR [None]
